FAERS Safety Report 4832562-4 (Version None)
Quarter: 2005Q4

REPORT INFORMATION
  Report Type: 
  Country: None (occurrence: None)
  Receive Date: 20051121
  Receipt Date: 20051109
  Transmission Date: 20060501
  Serious: Yes (Hospitalization, Other)
  Sender: FDA-Public Use
  Company Number: PT-BRISTOL-MYERS SQUIBB COMPANY-13182506

PATIENT
  Age: 77 Year
  Sex: Male

DRUGS (3)
  1. ERBITUX [Suspect]
     Indication: SQUAMOUS CELL CARCINOMA OF SKIN
     Dosage: TOTAL NUMBER OF INFUSIONS: 45
     Dates: start: 20041217, end: 20051024
  2. ATENOLOL [Concomitant]
     Dates: start: 20010101
  3. FINASTERIDE [Concomitant]
     Dates: start: 20030101

REACTIONS (3)
  - COLITIS [None]
  - DIARRHOEA [None]
  - ILEAL ULCER [None]
